FAERS Safety Report 12888675 (Version 1)
Quarter: 2016Q4

REPORT INFORMATION
  Report Type: Report from Study
  Country: AR (occurrence: AR)
  Receive Date: 20161027
  Receipt Date: 20161027
  Transmission Date: 20170207
  Serious: Yes (Other)
  Sender: FDA-Public Use
  Company Number: PHHY2016AR147332

PATIENT
  Sex: Female

DRUGS (1)
  1. DIOVAN [Suspect]
     Active Substance: VALSARTAN
     Indication: HYPERTENSION
     Dosage: 80 OT, QD
     Route: 065

REACTIONS (5)
  - Cataract [Recovering/Resolving]
  - Genitourinary tract neoplasm [Recovering/Resolving]
  - Haemorrhage [Recovering/Resolving]
  - Blood pressure increased [Recovering/Resolving]
  - Visual impairment [Recovering/Resolving]
